FAERS Safety Report 5591263-8 (Version None)
Quarter: 2008Q1

REPORT INFORMATION
  Report Type: 
  Country: None (occurrence: None)
  Receive Date: 20080110
  Receipt Date: 20080110
  Transmission Date: 20080703
  Serious: Yes (Hospitalization)
  Sender: FDA-Public Use
  Company Number: None

PATIENT
  Sex: Female
  Weight: 67.1 kg

DRUGS (7)
  1. CETUXIMAB [Suspect]
     Indication: ADENOCARCINOMA PANCREAS
     Dosage: 680MG/1700MG/170 ONCE/EVERY 2 WEEKS IV
     Route: 042
     Dates: start: 20071213, end: 20071214
  2. GEMCITABINE [Suspect]
     Indication: ADENOCARCINOMA PANCREAS
     Dosage: 425 MG
     Route: 042
     Dates: start: 20071220, end: 20071221
  3. OXALIPLATIN [Suspect]
  4. PANCREATIC ENZYMES [Concomitant]
  5. PREVACID [Concomitant]
  6. ACETAMINOPHEN [Concomitant]
  7. EXFORTE [Concomitant]

REACTIONS (2)
  - ABDOMINAL PAIN UPPER [None]
  - PYREXIA [None]
